FAERS Safety Report 17172895 (Version 1)
Quarter: 2019Q4

REPORT INFORMATION
  Report Type: Spontaneous
  Country: US (occurrence: US)
  Receive Date: 20191218
  Receipt Date: 20191218
  Transmission Date: 20200122
  Serious: No
  Sender: FDA-Public Use
  Company Number: US-BAYER-2019-229310

PATIENT
  Age: 88 Year
  Sex: Female

DRUGS (9)
  1. INDURIN [Concomitant]
  2. NAPROXEN SODIUM ({= 220 MG) [Concomitant]
     Active Substance: NAPROXEN SODIUM
     Dosage: 2 DF, QD
  3. LISINOPRIL. [Concomitant]
     Active Substance: LISINOPRIL
  4. ROSUVASTATIN. [Concomitant]
     Active Substance: ROSUVASTATIN
     Dosage: 1 DF, QD
  5. CLARITIN [Suspect]
     Active Substance: LORATADINE
     Indication: ALLERGIC RESPIRATORY SYMPTOM
     Dosage: 1 DF, QD
     Route: 048
  6. ZYRTEC [Suspect]
     Active Substance: CETIRIZINE HYDROCHLORIDE
     Dosage: 5 DF
  7. METOPROLOL. [Concomitant]
     Active Substance: METOPROLOL
     Dosage: 1 DF, QD
  8. CLARITIN [Suspect]
     Active Substance: LORATADINE
     Indication: NASOPHARYNGITIS
  9. INSULIN [Concomitant]
     Active Substance: INSULIN NOS

REACTIONS (1)
  - Drug ineffective [Unknown]
